FAERS Safety Report 14723118 (Version 1)
Quarter: 2018Q2

REPORT INFORMATION
  Report Type: Report from Study
  Country: DK (occurrence: DK)
  Receive Date: 20180405
  Receipt Date: 20180405
  Transmission Date: 20180711
  Serious: Yes (Other)
  Sender: FDA-Public Use
  Company Number: DK-TEVA-2018-DK-876148

PATIENT
  Age: 68 Year
  Sex: Female
  Weight: 67 kg

DRUGS (2)
  1. TRAMADOL ^ACTAVIS^ [Suspect]
     Active Substance: TRAMADOL
     Indication: PAIN
     Dosage: STRENGTH: 50 MG.?DOSES HAVE VARIED, AFTER SURGERY, DOSE WAS 50 MG X 4.
     Route: 048
     Dates: start: 2000
  2. GABAPENTIN. [Concomitant]
     Active Substance: GABAPENTIN
     Indication: PAIN
     Dosage: STRENGTH: 300 MG.?START DATE UNKNOWN, PROCESSED FOR OVER 1? YEARS
     Route: 048

REACTIONS (10)
  - Muscle twitching [Unknown]
  - Restlessness [Unknown]
  - Drug dependence [Unknown]
  - Anxiety [Unknown]
  - Lacrimation increased [Unknown]
  - Piloerection [Unknown]
  - Hyperhidrosis [Unknown]
  - Withdrawal syndrome [Unknown]
  - Feeling cold [Unknown]
  - Bone pain [Unknown]

NARRATIVE: CASE EVENT DATE: 20171017
